FAERS Safety Report 14559606 (Version 3)
Quarter: 2022Q3

REPORT INFORMATION
  Report Type: Report from Study
  Country: FR (occurrence: FR)
  Receive Date: 20180221
  Receipt Date: 20220805
  Transmission Date: 20221027
  Serious: Yes (Hospitalization, Other)
  Sender: FDA-Public Use
  Company Number: FR-SHIRE-FR201806613

PATIENT

DRUGS (9)
  1. PEGASPARGASE [Suspect]
     Active Substance: PEGASPARGASE
     Indication: Acute lymphocytic leukaemia
     Dosage: 900 IU, D15
     Route: 042
     Dates: start: 20180211, end: 20180211
  2. CYCLOPHOSPHAMIDE [Suspect]
     Active Substance: CYCLOPHOSPHAMIDE
     Indication: Acute lymphocytic leukaemia
     Dosage: 720 MG, D1, D29
     Route: 042
     Dates: start: 20180128, end: 20180319
  3. CYTARABINE [Suspect]
     Active Substance: CYTARABINE
     Indication: Acute lymphocytic leukaemia
     Dosage: 25 MG, D3, D31
     Route: 037
     Dates: start: 20180130, end: 20180321
  4. CYTARABINE [Suspect]
     Active Substance: CYTARABINE
     Dosage: 52.5 MG, D3 TO D6, D10 TO D13,
     Route: 042
     Dates: start: 20180130
  5. VINCRISTINE [Suspect]
     Active Substance: VINCRISTINE
     Indication: Acute lymphocytic leukaemia
     Dosage: 1 MG, D15, D22
     Route: 042
     Dates: start: 20180211
  6. METHYLPREDNISOLONE [Suspect]
     Active Substance: METHYLPREDNISOLONE
     Indication: Acute lymphocytic leukaemia
     Dosage: 12.4 MG, D3, D31
     Route: 037
     Dates: start: 20180130, end: 20180321
  7. METHOTREXATE [Suspect]
     Active Substance: METHOTREXATE
     Indication: Acute lymphocytic leukaemia
     Dosage: 10 MG, D3, D31
     Route: 037
     Dates: start: 20180130, end: 20180321
  8. MERCAPTOPURINE [Suspect]
     Active Substance: MERCAPTOPURINE
     Indication: Acute lymphocytic leukaemia
     Dosage: 42 MG, D1 TO D14, D29 TO D34
     Route: 048
     Dates: start: 20180128, end: 20180324
  9. ONDANSETRON [Concomitant]
     Active Substance: ONDANSETRON
     Indication: Product used for unknown indication
     Dosage: UNK
     Route: 065

REACTIONS (4)
  - Febrile bone marrow aplasia [Recovered/Resolved]
  - Device related infection [Recovered/Resolved]
  - Pseudomonas infection [Recovered/Resolved]
  - Escherichia pyelonephritis [Recovered/Resolved]

NARRATIVE: CASE EVENT DATE: 20180214
